FAERS Safety Report 17160126 (Version 3)
Quarter: 2020Q1

REPORT INFORMATION
  Report Type: Report from Study
  Country: US (occurrence: US)
  Receive Date: 20191216
  Receipt Date: 20200107
  Transmission Date: 20200409
  Serious: Yes (Hospitalization)
  Sender: FDA-Public Use
  Company Number: NVSC2019US028684

PATIENT
  Sex: Female

DRUGS (1)
  1. AFINITOR [Suspect]
     Active Substance: EVEROLIMUS
     Indication: PARTIAL SEIZURES
     Dosage: 3 MG, QD
     Route: 048
     Dates: start: 20191003

REACTIONS (4)
  - C-reactive protein increased [Unknown]
  - Pyrexia [Unknown]
  - Respiratory syncytial virus infection [Unknown]
  - Infection [Unknown]
